FAERS Safety Report 6144785-5 (Version None)
Quarter: 2009Q2

REPORT INFORMATION
  Report Type: 
  Country: None (occurrence: None)
  Receive Date: 20090406
  Receipt Date: 20090331
  Transmission Date: 20091009
  Serious: Yes (Other)
  Sender: FDA-Public Use
  Company Number: JP-WYE-H03615708

PATIENT
  Sex: Female
  Weight: 34 kg

DRUGS (15)
  1. MYLOTARG [Suspect]
     Indication: ACUTE MYELOID LEUKAEMIA RECURRENT
     Route: 041
     Dates: start: 20070706, end: 20070706
  2. MYLOTARG [Suspect]
     Route: 041
     Dates: start: 20070803, end: 20070803
  3. MINOCYCLINE HYDROCHLORIDE [Concomitant]
     Route: 041
     Dates: start: 20070703, end: 20070717
  4. MINOCYCLINE HYDROCHLORIDE [Concomitant]
     Route: 041
     Dates: start: 20070806, end: 20070907
  5. FUNGUARD [Concomitant]
     Indication: PROPHYLAXIS
     Route: 041
     Dates: start: 20070529, end: 20070717
  6. MAXIPIME [Concomitant]
     Indication: PROPHYLAXIS
     Route: 041
     Dates: start: 20070728, end: 20070805
  7. MAGNESIUM OXIDE [Concomitant]
     Indication: CONSTIPATION
     Route: 048
     Dates: start: 20070808, end: 20070821
  8. URSO 250 [Concomitant]
     Indication: PROPHYLAXIS
     Route: 048
     Dates: start: 20070705, end: 20070717
  9. URSO 250 [Concomitant]
     Route: 048
     Dates: start: 20070802, end: 20070814
  10. GASTER [Concomitant]
     Indication: PROPHYLAXIS
     Route: 048
     Dates: start: 20070516
  11. ALUMINIUM HYDROXIDE W/ MAGNESIUM HYDROXIDE [Concomitant]
     Indication: PROPHYLAXIS
     Route: 048
     Dates: start: 20070516
  12. CYANOCOBALAMIN [Concomitant]
     Indication: PROPHYLAXIS
     Route: 048
     Dates: start: 20070524
  13. MODACIN [Concomitant]
     Indication: PROPHYLAXIS
     Route: 041
     Dates: start: 20070806, end: 20070907
  14. MEROPEN [Concomitant]
     Route: 041
     Dates: start: 20070703, end: 20070717
  15. PRODIF [Concomitant]
     Indication: PROPHYLAXIS
     Route: 042
     Dates: start: 20070718, end: 20070805

REACTIONS (6)
  - HAEMATOCRIT DECREASED [None]
  - HAEMOGLOBIN DECREASED [None]
  - LYMPHOCYTE COUNT INCREASED [None]
  - NEUTROPHIL COUNT DECREASED [None]
  - RED BLOOD CELL COUNT DECREASED [None]
  - WHITE BLOOD CELL COUNT DECREASED [None]
